FAERS Safety Report 20659905 (Version 1)
Quarter: 2022Q1

REPORT INFORMATION
  Report Type: Spontaneous
  Country: FR (occurrence: FR)
  Receive Date: 20220331
  Receipt Date: 20220331
  Transmission Date: 20220423
  Serious: Yes (Death, Hospitalization, Other)
  Sender: FDA-Public Use
  Company Number: FR-NOVARTISPH-NVSC2022FR072822

PATIENT
  Age: 50 Year
  Sex: Female
  Weight: 54 kg

DRUGS (4)
  1. CYCLOSPORINE [Suspect]
     Active Substance: CYCLOSPORINE
     Indication: Product used for unknown indication
     Dosage: UNK
     Route: 042
     Dates: start: 20201227, end: 20210603
  2. CYCLOSPORINE [Suspect]
     Active Substance: CYCLOSPORINE
     Dosage: UNK
     Route: 048
  3. BUSULFAN [Concomitant]
     Active Substance: BUSULFAN
     Indication: Product used for unknown indication
     Dosage: UNK
     Route: 065
  4. METHOTREXATE [Concomitant]
     Active Substance: METHOTREXATE
     Indication: Product used for unknown indication
     Dosage: 10 MG/M2
     Route: 042
     Dates: start: 20201222, end: 20210103

REACTIONS (11)
  - Acute respiratory distress syndrome [Fatal]
  - COVID-19 pneumonia [Fatal]
  - Pyrexia [Fatal]
  - Asthenia [Fatal]
  - Cough [Fatal]
  - Dyspnoea [Fatal]
  - Sepsis [Unknown]
  - Pulmonary fibrosis [Unknown]
  - Thrombocytopenia [Unknown]
  - Hypercapnia [Unknown]
  - Anaemia [Unknown]

NARRATIVE: CASE EVENT DATE: 20210727
